FAERS Safety Report 12138623 (Version 2)
Quarter: 2016Q1

REPORT INFORMATION
  Report Type: Spontaneous
  Country: US (occurrence: US)
  Receive Date: 20160302
  Receipt Date: 20160307
  Transmission Date: 20160526
  Serious: Yes (Hospitalization, Other)
  Sender: FDA-Public Use
  Company Number: US-009507513-1603USA000428

PATIENT
  Sex: Male
  Weight: 91.61 kg

DRUGS (1)
  1. PROPECIA [Suspect]
     Active Substance: FINASTERIDE
     Indication: BENIGN PROSTATIC HYPERPLASIA
     Dosage: 1 MG, QD
     Route: 048
     Dates: start: 2003, end: 200805

REACTIONS (15)
  - Male sexual dysfunction [Not Recovered/Not Resolved]
  - Off label use [Unknown]
  - Erectile dysfunction [Not Recovered/Not Resolved]
  - Hypertension [Unknown]
  - Gout [Unknown]
  - Chest pain [Unknown]
  - Dyspnoea [Unknown]
  - Genital pain [Unknown]
  - Hepatitis C [Unknown]
  - Inguinal hernia [Unknown]
  - Cystitis radiation [Unknown]
  - Prostate cancer [Not Recovered/Not Resolved]
  - Arteriosclerosis coronary artery [Unknown]
  - Nasopharyngitis [Unknown]
  - Hyperlipidaemia [Unknown]

NARRATIVE: CASE EVENT DATE: 2004
